FAERS Safety Report 13239543 (Version 2)
Quarter: 2017Q1

REPORT INFORMATION
  Report Type: Spontaneous
  Country: DE (occurrence: DE)
  Receive Date: 20170216
  Receipt Date: 20170324
  Transmission Date: 20170428
  Serious: Yes (Hospitalization, Disabling, Other)
  Sender: FDA-Public Use
  Company Number: DE-JNJFOC-20170213986

PATIENT
  Age: 81 Year
  Sex: Female

DRUGS (5)
  1. BETA-ACETYLDIGOXIN [Concomitant]
     Active Substance: ACETYLDIGITOXIN
     Route: 065
  2. SIMVASTATIN. [Concomitant]
     Active Substance: SIMVASTATIN
     Route: 065
  3. BISOPROLOL [Concomitant]
     Active Substance: BISOPROLOL
     Route: 065
  4. TORASEMID [Concomitant]
     Active Substance: TORSEMIDE
     Route: 065
  5. XARELTO [Suspect]
     Active Substance: RIVAROXABAN
     Indication: ATRIAL FIBRILLATION
     Route: 048

REACTIONS (1)
  - Embolic cerebral infarction [Unknown]

NARRATIVE: CASE EVENT DATE: 20170203
